FAERS Safety Report 4492844-5 (Version None)
Quarter: 2004Q4

REPORT INFORMATION
  Report Type: 
  Country: None (occurrence: None)
  Receive Date: 20041102
  Receipt Date: 20041102
  Transmission Date: 20050328
  Serious: No
  Sender: FDA-Public Use
  Company Number: None

PATIENT
  Age: 20 Year
  Sex: Male

DRUGS (3)
  1. CLOZAPINE [Suspect]
     Dosage: 100 MG AM ORAL, 200 MG QHS ORAL
     Route: 048
  2. CLONAZEPAM [Concomitant]
  3. OLANZAPINE [Concomitant]

REACTIONS (1)
  - MYOCLONUS [None]
